FAERS Safety Report 10060777 (Version 3)
Quarter: 2014Q2

REPORT INFORMATION
  Report Type: Spontaneous
  Country: US (occurrence: US)
  Receive Date: 20140404
  Receipt Date: 20140522
  Transmission Date: 20141212
  Serious: No
  Sender: FDA-Public Use
  Company Number: US-B.I. PHARMACEUTICALS,INC./RIDGEFIELD-2014-BI-13360BP

PATIENT
  Sex: Female

DRUGS (2)
  1. SPIRIVA [Suspect]
     Indication: CHRONIC OBSTRUCTIVE PULMONARY DISEASE
     Dosage: 18 MCG
     Route: 055
     Dates: start: 2011
  2. BLOOD PRESSURE MEDICATION [Concomitant]
     Route: 065

REACTIONS (4)
  - Dysphonia [Not Recovered/Not Resolved]
  - Aphonia [Not Recovered/Not Resolved]
  - Product quality issue [Unknown]
  - Product quality issue [Unknown]
